FAERS Safety Report 16394212 (Version 3)
Quarter: 2019Q3

REPORT INFORMATION
  Report Type: Spontaneous
  Country: GR (occurrence: GR)
  Receive Date: 20190605
  Receipt Date: 20190710
  Transmission Date: 20191004
  Serious: Yes (Congenital Anomaly, Other)
  Sender: FDA-Public Use
  Company Number: GR-PFIZER INC-2019237971

PATIENT
  Sex: Female
  Weight: 1.91 kg

DRUGS (7)
  1. FLUTICASONE PROPIONATE. [Suspect]
     Active Substance: FLUTICASONE PROPIONATE
     Indication: GRANULOMATOSIS WITH POLYANGIITIS
     Dosage: 500 UG, ONCE A DAY
     Route: 064
  2. NADROPARIN CALCIUM [Suspect]
     Active Substance: NADROPARIN CALCIUM
     Indication: GRANULOMATOSIS WITH POLYANGIITIS
     Dosage: 0.3 ML, UNK
     Route: 064
  3. METHYLPREDNISOLONE. [Suspect]
     Active Substance: METHYLPREDNISOLONE
     Indication: GRANULOMATOSIS WITH POLYANGIITIS
     Dosage: 8 MG, 2X/DAY
     Route: 064
  4. BETAMETHASONE. [Suspect]
     Active Substance: BETAMETHASONE
     Indication: GRANULOMATOSIS WITH POLYANGIITIS
     Dosage: 12 MG, 2 DOSES
     Route: 064
  5. SALBUTAMOL [Suspect]
     Active Substance: ALBUTEROL
     Indication: GRANULOMATOSIS WITH POLYANGIITIS
     Dosage: 600 UG, ONCE A DAY
     Route: 064
  6. AZATHIOPRINE. [Suspect]
     Active Substance: AZATHIOPRINE
     Indication: GRANULOMATOSIS WITH POLYANGIITIS
     Dosage: 125 MG, ONCE A DAY
     Route: 064
  7. METHYLPREDNISOLONE. [Suspect]
     Active Substance: METHYLPREDNISOLONE
     Dosage: 4 MG, 2X/DAY
     Route: 064

REACTIONS (2)
  - Foetal growth restriction [Unknown]
  - Foetal exposure during pregnancy [Unknown]
